FAERS Safety Report 19687581 (Version 2)
Quarter: 2021Q3

REPORT INFORMATION
  Report Type: Report from Study
  Country: None (occurrence: US)
  Receive Date: 20210812
  Receipt Date: 20210817
  Transmission Date: 20211014
  Serious: Yes (Hospitalization, Other)
  Sender: FDA-Public Use
  Company Number: US-ABBVIE-21K-163-3983546-00

PATIENT
  Sex: Female
  Weight: 94.89 kg

DRUGS (6)
  1. MODERNA COVID?19 VACCINE [Concomitant]
     Active Substance: CX-024414
     Route: 030
     Dates: start: 202103, end: 202103
  2. HUMIRA [Suspect]
     Active Substance: ADALIMUMAB
     Route: 058
     Dates: start: 202104
  3. HUMIRA [Suspect]
     Active Substance: ADALIMUMAB
     Indication: RHEUMATOID ARTHRITIS
     Route: 058
     Dates: start: 2018
  4. PREDNISONE. [Concomitant]
     Active Substance: PREDNISONE
     Indication: PRODUCT USED FOR UNKNOWN INDICATION
  5. MODERNA COVID?19 VACCINE [Concomitant]
     Active Substance: CX-024414
     Indication: COVID-19 IMMUNISATION
     Route: 030
     Dates: start: 202103, end: 202103
  6. METHOTREXATE. [Concomitant]
     Active Substance: METHOTREXATE
     Indication: PRODUCT USED FOR UNKNOWN INDICATION

REACTIONS (9)
  - Systemic lupus erythematosus [Recovering/Resolving]
  - Pain [Recovered/Resolved]
  - Haemorrhage [Unknown]
  - Osteoarthritis [Recovered/Resolved]
  - Fibula fracture [Recovered/Resolved]
  - Femur fracture [Recovered/Resolved]
  - Osteoarthritis [Recovered/Resolved]
  - Fall [Recovered/Resolved]
  - Gait disturbance [Recovered/Resolved]

NARRATIVE: CASE EVENT DATE: 2018
